FAERS Safety Report 9867679 (Version 1)
Quarter: 2014Q1

REPORT INFORMATION
  Report Type: Spontaneous
  Country: US (occurrence: None)
  Receive Date: 20140203
  Receipt Date: 20140203
  Transmission Date: 20141002
  Serious: Yes (Other)
  Sender: FDA-Public Use
  Company Number: None

PATIENT
  Age: 41 Year
  Sex: Male
  Weight: 111.13 kg

DRUGS (4)
  1. RIZATRIPTAN BENZOATE [Suspect]
     Indication: MIGRAINE
     Route: 060
     Dates: start: 20140131, end: 20140131
  2. MIDODRINE [Concomitant]
  3. CLONAZEPAM [Concomitant]
  4. PHENERGAN [Concomitant]

REACTIONS (3)
  - Product substitution issue [None]
  - Product solubility abnormal [None]
  - Chemical injury [None]
